FAERS Safety Report 17010492 (Version 4)
Quarter: 2019Q4

REPORT INFORMATION
  Report Type: Spontaneous
  Country: CN (occurrence: CN)
  Receive Date: 20191108
  Receipt Date: 20191205
  Transmission Date: 20200122
  Serious: Yes (Death, Other)
  Sender: FDA-Public Use
  Company Number: CN-BRACCO-2019CN05565

PATIENT
  Age: 77 Year
  Sex: Male

DRUGS (1)
  1. IOPAMIRO [Suspect]
     Active Substance: IOPAMIDOL
     Indication: ANGIOGRAM
     Dosage: 90 ML, SINGLE
     Route: 042
     Dates: start: 20191026, end: 20191026

REACTIONS (8)
  - Dyspnoea [Fatal]
  - Urinary incontinence [Unknown]
  - Feeling hot [Unknown]
  - Loss of consciousness [Unknown]
  - Tremor [Unknown]
  - Pulmonary embolism [Fatal]
  - Cyanosis [Recovered/Resolved]
  - Vomiting [Unknown]

NARRATIVE: CASE EVENT DATE: 20191026
